FAERS Safety Report 6811281-9 (Version None)
Quarter: 2010Q2

REPORT INFORMATION
  Report Type: 
  Country: None (occurrence: None)
  Receive Date: 20100630
  Receipt Date: 20091104
  Transmission Date: 20101027
  Serious: No
  Sender: FDA-Public Use
  Company Number: US-AMGEN-KDL373167

PATIENT
  Age: 93 Year
  Sex: Male

DRUGS (6)
  1. PROCRIT [Suspect]
     Indication: ANAEMIA OF MALIGNANT DISEASE
     Dates: start: 20090801
  2. NORVASC [Concomitant]
  3. ZOCOR [Concomitant]
  4. ALTACE [Concomitant]
  5. ASPIRIN [Concomitant]
  6. NEXIUM [Concomitant]

REACTIONS (2)
  - ADVERSE DRUG REACTION [None]
  - LIP SWELLING [None]
